FAERS Safety Report 14197011 (Version 1)
Quarter: 2017Q4

REPORT INFORMATION
  Report Type: Other
  Country: US (occurrence: US)
  Receive Date: 20171116
  Receipt Date: 20171116
  Transmission Date: 20180321
  Serious: No
  Sender: FDA-Public Use
  Company Number: US-DUSA PHARMACEUTICALS, INC.-2034400

PATIENT
  Age: 57 Year
  Sex: Male
  Weight: 100 kg

DRUGS (1)
  1. LEVULAN KERASTICK [Suspect]
     Active Substance: AMINOLEVULINIC ACID HYDROCHLORIDE
     Indication: ACTINIC KERATOSIS
     Route: 061
     Dates: start: 20150610, end: 20150610

REACTIONS (17)
  - Application site oedema [None]
  - Ecchymosis [None]
  - Application site discolouration [Not Recovered/Not Resolved]
  - Application site pain [Recovering/Resolving]
  - Application site laceration [Not Recovered/Not Resolved]
  - Temperature intolerance [Not Recovered/Not Resolved]
  - Application site inflammation [None]
  - Application site erythema [Recovered/Resolved]
  - Application site swelling [Recovered/Resolved]
  - Application site bruise [Not Recovered/Not Resolved]
  - Burns second degree [None]
  - Oropharyngeal pain [Recovered/Resolved]
  - Hyperaesthesia [Not Recovered/Not Resolved]
  - Application site rash [Recovering/Resolving]
  - Application site vesicles [Recovered/Resolved]
  - Skin atrophy [Not Recovered/Not Resolved]
  - Pyrexia [None]

NARRATIVE: CASE EVENT DATE: 20150610
